FAERS Safety Report 4593083-X (Version None)
Quarter: 2005Q1

REPORT INFORMATION
  Report Type: 
  Country: None (occurrence: None)
  Receive Date: 20050301
  Receipt Date: 20050217
  Transmission Date: 20050727
  Serious: Yes (Hospitalization)
  Sender: FDA-Public Use
  Company Number: FR-SOLVAY-00205000574

PATIENT
  Age: 56 Year
  Sex: Male

DRUGS (6)
  1. COVERSYL [Suspect]
     Indication: ILL-DEFINED DISORDER
     Dosage: DAILY DOSE: 2 MILLIGRAM(S)
     Route: 048
  2. IXEL [Suspect]
     Indication: ILL-DEFINED DISORDER
     Dosage: DAILY DOSE:  UNKNOWN
     Route: 065
     Dates: start: 20041217
  3. DEPAMIDE [Suspect]
     Indication: ILL-DEFINED DISORDER
     Dosage: DAILY DOSE: 3 DOSAGE FORM
     Route: 048
  4. LASILIX [Suspect]
     Indication: ILL-DEFINED DISORDER
     Dosage: DAILY DOSE: 40 MILLIGRAM(S)
     Route: 048
  5. OMIX [Suspect]
     Indication: ILL-DEFINED DISORDER
     Dosage: DAILY DOSE: 1 DOSAGE FORM
     Route: 048
  6. CADENS [Suspect]
     Indication: ILL-DEFINED DISORDER
     Dosage: DAILY DOSE:  UNKNOWN
     Route: 030
     Dates: start: 20041211, end: 20050104

REACTIONS (5)
  - BIPOLAR I DISORDER [None]
  - HYPOTENSION [None]
  - LOSS OF CONSCIOUSNESS [None]
  - MALAISE [None]
  - NODAL ARRHYTHMIA [None]
